FAERS Safety Report 12105285 (Version 1)
Quarter: 2016Q1

REPORT INFORMATION
  Report Type: Spontaneous
  Country: GB (occurrence: GB)
  Receive Date: 20160223
  Receipt Date: 20160223
  Transmission Date: 20160526
  Serious: Yes (Hospitalization, Disabling)
  Sender: FDA-Public Use
  Company Number: GB-TEVA-635613ACC

PATIENT
  Age: 75 Year
  Sex: Female

DRUGS (21)
  1. MAGNESIUM [Suspect]
     Active Substance: MAGNESIUM
     Route: 048
  2. COENZYME Q10 [Suspect]
     Active Substance: UBIDECARENONE
     Route: 048
  3. VITAMIN C [Suspect]
     Active Substance: ASCORBIC ACID
     Route: 048
  4. FOLIC ACID. [Suspect]
     Active Substance: FOLIC ACID
     Route: 048
  5. STARFLOWER OIL [Suspect]
     Active Substance: HERBALS
     Route: 048
  6. BUCKWHEAT. [Suspect]
     Active Substance: BUCKWHEAT
     Route: 048
  7. COD LIVER OIL [Suspect]
     Active Substance: COD LIVER OIL
     Dosage: 1 DOSAGE FORMS DAILY;
     Route: 048
  8. FLAX SEED [Suspect]
     Active Substance: FLAX SEED
     Route: 048
  9. TURMERIC [Suspect]
     Active Substance: TURMERIC
     Route: 048
  10. CELERY SEED [Suspect]
     Active Substance: CELERY SEED
     Dosage: 1 DOSAGE FORMS DAILY;
     Route: 048
  11. CRANBERRY. [Suspect]
     Active Substance: CRANBERRY
     Route: 048
  12. LECITHIN [Suspect]
     Active Substance: LECITHIN
     Route: 048
  13. CHARCOAL [Suspect]
     Active Substance: ACTIVATED CHARCOAL
     Route: 048
  14. KELP [Suspect]
     Active Substance: KELP
     Route: 048
  15. OSTEOCARE [Suspect]
     Active Substance: CALCIUM\CHOLECALCIFEROL\MAGNESIUM\ZINC
     Dosage: 1 DOSAGE FORMS DAILY;
     Route: 048
  16. POTASSIUM [Suspect]
     Active Substance: POTASSIUM
     Route: 048
  17. QUININE ACID SULPHATE [Suspect]
     Active Substance: QUININE SULFATE
     Indication: MUSCLE SPASMS
     Dosage: 300 MILLIGRAM DAILY; AT NIGHT
     Route: 048
     Dates: end: 20160203
  18. GARLIC EXTRACT [Suspect]
     Active Substance: GARLIC
     Route: 048
  19. GENERICS UK NAPROXEN [Suspect]
     Active Substance: NAPROXEN
     Indication: OSTEOARTHRITIS
     Dosage: 250 MILLIGRAM DAILY;
     Route: 048
     Dates: start: 2011, end: 20160203
  20. OMEGA-3 ACIDS [Suspect]
     Active Substance: OMEGA-3 FATTY ACIDS
     Dosage: 1 DOSAGE FORMS DAILY;
     Route: 048
  21. ZINC [Suspect]
     Active Substance: ZINC\ZINC CHLORIDE
     Route: 048

REACTIONS (2)
  - Left ventricular dysfunction [Recovering/Resolving]
  - Cardiac failure [Recovering/Resolving]

NARRATIVE: CASE EVENT DATE: 20160202
